FAERS Safety Report 23386940 (Version 1)
Quarter: 2024Q1

REPORT INFORMATION
  Report Type: Spontaneous
  Country: US (occurrence: None)
  Receive Date: 20240109
  Receipt Date: 20240109
  Transmission Date: 20240410
  Serious: Yes (Other)
  Sender: FDA-Public Use
  Company Number: None

PATIENT
  Age: 48 Year
  Sex: Female
  Weight: 94.5 kg

DRUGS (8)
  1. ADDYI [Suspect]
     Active Substance: FLIBANSERIN
     Indication: Libido decreased
     Dosage: FREQUENCY : AT BEDTIME;?
     Route: 048
     Dates: start: 20201013, end: 20211201
  2. HYDROCHLOROTHIAZIDE\TRIAMTERENE [Concomitant]
     Active Substance: HYDROCHLOROTHIAZIDE\TRIAMTERENE
  3. VALSARTAN AND HYDROCHLOROTHIAZIDE [Concomitant]
     Active Substance: HYDROCHLOROTHIAZIDE\VALSARTAN
  4. HERBALS\TURMERIC [Concomitant]
     Active Substance: HERBALS\TURMERIC
  5. UNSPECIFIED INGREDIENT [Concomitant]
     Active Substance: UNSPECIFIED INGREDIENT
  6. HERBALS [Concomitant]
     Active Substance: HERBALS
  7. VITAMINS [Concomitant]
     Active Substance: VITAMINS
  8. ZINC [Concomitant]
     Active Substance: PYRITHIONE ZINC\ZINC\ZINC CHLORIDE

REACTIONS (7)
  - Dyskinesia [None]
  - Tongue disorder [None]
  - Lip disorder [None]
  - Drug ineffective [None]
  - Therapy cessation [None]
  - COVID-19 [None]
  - Dental caries [None]

NARRATIVE: CASE EVENT DATE: 20210801
